FAERS Safety Report 9124740 (Version 2)
Quarter: 2013Q2

REPORT INFORMATION
  Report Type: Spontaneous
  Country: CA (occurrence: CA)
  Receive Date: 20130227
  Receipt Date: 20130401
  Transmission Date: 20140414
  Serious: Yes (Hospitalization)
  Sender: FDA-Public Use
  Company Number: CA-GILEAD-2013-0068652

PATIENT
  Age: 74 Year
  Sex: Female

DRUGS (22)
  1. AMBRISENTAN [Suspect]
     Indication: CONNECTIVE TISSUE DISORDER
     Dosage: 10MG PER DAY
     Route: 048
     Dates: start: 20110309
  2. NORVASC [Concomitant]
  3. AAS [Concomitant]
  4. SYNTHROID [Concomitant]
  5. DOXAZOSIN MESYLATE [Concomitant]
  6. CALCITONIN [Concomitant]
  7. ACETAZOLAMIDE [Concomitant]
  8. ARANESP [Concomitant]
  9. ATORVASTATIN [Concomitant]
  10. CALCIUM + VITAMIN D [Concomitant]
  11. CLONIDINE [Concomitant]
  12. DEXILANT [Concomitant]
  13. DOCUSATE SODIUM [Concomitant]
  14. FOSRENOL [Concomitant]
  15. FUROSEMIDE [Concomitant]
  16. METOPROLOL [Concomitant]
  17. BISACODYL [Concomitant]
  18. VALSARTAN [Concomitant]
  19. PLAVIX [Concomitant]
  20. ADCIRCA [Concomitant]
  21. GRAVOL [Concomitant]
  22. IMODIUM [Concomitant]

REACTIONS (7)
  - Cardiac disorder [Not Recovered/Not Resolved]
  - Dyspnoea [Not Recovered/Not Resolved]
  - Muscular weakness [Not Recovered/Not Resolved]
  - Diarrhoea [Not Recovered/Not Resolved]
  - Nausea [Not Recovered/Not Resolved]
  - Vomiting [Not Recovered/Not Resolved]
  - Local swelling [Not Recovered/Not Resolved]
